FAERS Safety Report 17287374 (Version 1)
Quarter: 2020Q1

REPORT INFORMATION
  Report Type: Spontaneous
  Country: ES (occurrence: ES)
  Receive Date: 20200120
  Receipt Date: 20200120
  Transmission Date: 20200409
  Serious: Yes (Other)
  Sender: FDA-Public Use
  Company Number: ES-TEVA-2020-ES-1169746

PATIENT
  Age: 79 Year
  Sex: Female

DRUGS (17)
  1. STALEVO 100 MG/25 MG/200 MG COMPRIMIDOS RECUBIERTOS CON PELICULA [Concomitant]
     Dosage: 100 MG / 25 MG / 200 MG
  2. SERTRALINA 50 MG COMPRIMIDO [Concomitant]
  3. CARDURAN NEO 4 MG COMPRIMIDOS DE LIBERACION MODIFICADA [Concomitant]
  4. MIRTAZAPINA (2704A) [Concomitant]
     Active Substance: MIRTAZAPINE
  5. FLIXONASE [Concomitant]
     Active Substance: FLUTICASONE PROPIONATE
  6. ATORVASTATINA (7400A) [Concomitant]
     Active Substance: ATORVASTATIN
  7. SERETIDE ACCUHALER 50 MICROGRAMOS/100 MICROGRAMOS/INHALACI?N, POLVO PA [Concomitant]
     Dosage: 50 MICROGRAMS / 100 MICROGRAMS
  8. FUROSEMIDA 40 MG COMPRIMIDO [Concomitant]
     Active Substance: FUROSEMIDE
  9. AZILECT [Concomitant]
     Active Substance: RASAGILINE MESYLATE
  10. SINEMET CR [Concomitant]
     Active Substance: CARBIDOPA\LEVODOPA
     Dosage: 50 MG / 200 MG
  11. MOXIFLOXACINO 400 MG 5 COMPRIMIDOS [Suspect]
     Active Substance: MOXIFLOXACIN HYDROCHLORIDE
     Indication: UPPER RESPIRATORY TRACT INFECTION
     Dosage: 400 MG; 0-1-0-0; 5 TABLETS
     Route: 048
     Dates: start: 20191223, end: 20191223
  12. ALPRAZOLAM 1 MG COMPRIMIDO [Concomitant]
  13. MOVICOL [Concomitant]
     Active Substance: POLYETHYLENE GLYCOL 3350\POTASSIUM CHLORIDE\SODIUM BICARBONATE\SODIUM CHLORIDE
  14. SEDOTIME 15 MG CAPSULAS DURAS [Concomitant]
  15. SALBUTAMOL (2297A) [Concomitant]
     Active Substance: ALBUTEROL
  16. SINGULAIR 10 MG COMPRIMIDOS RECUBIERTOS CON PELICULA [Concomitant]
  17. ADIRO 100 MG COMPRIMIDOS GASTRORRESISTENTES EFG [Concomitant]
     Active Substance: ASPIRIN

REACTIONS (8)
  - Disorientation [Recovering/Resolving]
  - Hypotension [Recovering/Resolving]
  - Oxygen saturation decreased [Recovering/Resolving]
  - Syncope [Recovering/Resolving]
  - Rash [Recovering/Resolving]
  - Pruritus [Recovering/Resolving]
  - Speech disorder [Recovering/Resolving]
  - Flushing [Recovering/Resolving]

NARRATIVE: CASE EVENT DATE: 20191223
